FAERS Safety Report 6248152-5 (Version None)
Quarter: 2009Q2

REPORT INFORMATION
  Report Type: 
  Country: None (occurrence: None)
  Receive Date: 20090624
  Receipt Date: 20090624
  Transmission Date: 20091009
  Serious: Yes (Disabling)
  Sender: FDA-Public Use
  Company Number: None

PATIENT
  Sex: Male
  Weight: 70.3075 kg

DRUGS (3)
  1. LAMOTRIGINE [Suspect]
     Indication: EPILEPSY
     Dosage: 900 MG TWICE STARTED 2004 OR 05
  2. DILANTIN [Suspect]
     Indication: EPILEPSY
     Dosage: 250 MG TWICE
     Dates: start: 19860101
  3. PHENYTOIN [Suspect]
     Indication: EPILEPSY
     Dosage: 250 MG TWICE
     Dates: start: 19860101

REACTIONS (1)
  - UNEVALUABLE EVENT [None]
